FAERS Safety Report 9830032 (Version 1)
Quarter: 2014Q1

REPORT INFORMATION
  Report Type: Spontaneous
  Country: US (occurrence: US)
  Receive Date: 20140120
  Receipt Date: 20140120
  Transmission Date: 20141002
  Serious: Yes (Other)
  Sender: FDA-Public Use
  Company Number: US-BAYER-2014-006043

PATIENT
  Sex: Female

DRUGS (21)
  1. BAYER GENUINE ASPIRIN ORIGINAL STRENGTH [Suspect]
  2. FIBERCON [Concomitant]
     Indication: CONSTIPATION
     Dosage: 2 DF, BY MOUTH DAILY
     Route: 048
  3. SENNA [Concomitant]
     Indication: CONSTIPATION
     Dosage: 2 TABD BY MOUTH 2X^S A DAY
     Route: 048
  4. OXYBUTYNIN [Concomitant]
     Indication: URINARY INCONTINENCE
     Dosage: 5 MG BY MOUTH 3 X^S A DAY
     Route: 048
  5. LYRICA [Concomitant]
     Indication: NEUROPATHY PERIPHERAL
     Dosage: 100 MG BY MOUTH 3X^S A DAY
     Route: 048
  6. TRAZODONE [Concomitant]
     Indication: INSOMNIA
     Dosage: 200 MG BY MOUTH AT BEDTIME
     Route: 048
  7. FLONASE [Concomitant]
     Indication: MULTIPLE ALLERGIES
     Dosage: ONE SPRAY EACH NOSTRIL DAILY
     Route: 045
  8. TYLENOL [PARACETAMOL] [Concomitant]
     Indication: PAIN
     Dosage: 500 MG EVERY 6 HOURS AS NEEDED
     Route: 048
  9. CELEBREX [Concomitant]
     Indication: BACK PAIN
     Dosage: 200 MG BY MOUTH DAILY
     Route: 048
  10. LORTAB [Concomitant]
     Indication: BACK PAIN
     Dosage: 10/325 MG BY MOUTH EVERY 8 HOURS AS NEEDED
     Route: 048
  11. LORTAB [Concomitant]
     Indication: ARTHRALGIA
  12. ZANAFLEX [Concomitant]
     Indication: PAIN
     Dosage: 4 MG BY MOUTH 2X^S A DAY AS NEEDED
     Route: 048
  13. ZANAFLEX [Concomitant]
     Indication: MUSCLE RELAXANT THERAPY
  14. LIDODERM [Concomitant]
     Indication: PAIN
     Dosage: APPLY PATCH ON FOR 12 HOURS A DAY
  15. ALBUTEROL [Concomitant]
     Indication: DYSPNOEA
     Dosage: 2 PUFFS EVERY 6 HOURS AS NEEDED
  16. ALBUTEROL [Concomitant]
     Indication: WHEEZING
     Dosage: ONE NEBULE VIA NEBULIZER EVERY 6 HOURS 2X?S A DAY
  17. ADVAIR DISKUS [Concomitant]
     Indication: CHRONIC OBSTRUCTIVE PULMONARY DISEASE
     Dosage: 250/50 MCG 1 PUFF 2X^S A DAY
  18. NITROGLYCERINE [Concomitant]
     Indication: CHEST PAIN
     Dosage: 0.4 MG UNDER THE TONGUE (MAY REPEAT EVERY 5 MINUTES X 2 X IF NO RELIEF CALL 911 AND GO ER)
     Route: 060
  19. NORMAL SALINE [Concomitant]
     Indication: ACUTE SINUSITIS
     Dosage: SPRAY EACH NOSTRIL 3 X^S A DAY
  20. ZITHROMAX Z-PACK [Concomitant]
     Indication: ACUTE SINUSITIS
     Dosage: 500 MG BY MOUTH ON FIRST DAY
     Route: 048
  21. ZITHROMAX Z-PACK [Concomitant]
     Indication: ACUTE SINUSITIS
     Dosage: 250 MG BY MOUTH FROM DAY 2 TO DAY 5

REACTIONS (1)
  - Gastrointestinal haemorrhage [None]
